FAERS Safety Report 5052061-7 (Version None)
Quarter: 2006Q3

REPORT INFORMATION
  Report Type: 
  Country: None (occurrence: None)
  Receive Date: 20060711
  Receipt Date: 20060627
  Transmission Date: 20061208
  Serious: Yes (Hospitalization)
  Sender: FDA-Public Use
  Company Number: 226154

PATIENT
  Age: 49 Year
  Sex: 0
  Weight: 76 kg

DRUGS (6)
  1. RITUXIMAB (RITUXIMAB) CONC FOR SOLUTION FOR INFUSION [Suspect]
     Indication: CHRONIC LYMPHOCYTIC LEUKAEMIA
     Dosage: 95 MG, INTRAVENOUS
     Route: 042
     Dates: start: 20060510, end: 20060510
  2. CYCLOPHOSPHAMIDE [Suspect]
     Indication: CHRONIC LYMPHOCYTIC LEUKAEMIA
     Dosage: 475 MG, INTRAVENOUS
     Route: 042
     Dates: start: 20060510, end: 20060512
  3. FLUDARABINE [Suspect]
     Indication: CHRONIC LYMPHOCYTIC LEUKAEMIA
     Dosage: 47.5 MG, INTRAVENOUS
     Route: 042
     Dates: start: 20060510, end: 20060512
  4. LANSOPRAZOLE [Concomitant]
  5. KETOPROFEN [Concomitant]
  6. METESCULETOL SODIUM (METESCULETOL) [Concomitant]

REACTIONS (10)
  - AGRANULOCYTOSIS [None]
  - ASTHENIA [None]
  - CHILLS [None]
  - COUGH [None]
  - HEADACHE [None]
  - HYPERHIDROSIS [None]
  - HYPOTENSION [None]
  - MALAISE [None]
  - PHARYNGOLARYNGEAL PAIN [None]
  - PYREXIA [None]
